FAERS Safety Report 6826761-X (Version None)
Quarter: 2010Q3

REPORT INFORMATION
  Report Type: 
  Country: None (occurrence: None)
  Receive Date: 20100709
  Receipt Date: 20100702
  Transmission Date: 20110219
  Serious: Yes (Hospitalization, Other)
  Sender: FDA-Public Use
  Company Number: US-JNJFOC-20100300713

PATIENT
  Sex: Male

DRUGS (1)
  1. LEVAQUIN [Suspect]
     Indication: SINUSITIS
     Route: 048

REACTIONS (2)
  - TENDONITIS [None]
  - TENOSYNOVITIS [None]
